FAERS Safety Report 7817122-5 (Version None)
Quarter: 2011Q4

REPORT INFORMATION
  Report Type: 
  Country: None (occurrence: None)
  Receive Date: 20111017
  Receipt Date: 20111017
  Transmission Date: 20120403
  Serious: Yes (Other)
  Sender: FDA-Public Use
  Company Number: None

PATIENT
  Age: 39 Year
  Sex: Female
  Weight: 58.513 kg

DRUGS (4)
  1. TOPIRAMATE [Suspect]
     Indication: EPILEPSY
     Dosage: 25 MG
     Route: 048
     Dates: start: 20100310, end: 20111007
  2. TOPIRAMATE [Concomitant]
  3. GARAPENTIN [Concomitant]
     Route: 048
  4. IBOPRUFEN [Concomitant]
     Route: 048

REACTIONS (23)
  - VERTIGO [None]
  - VISION BLURRED [None]
  - DIPLOPIA [None]
  - HYPOTENSION [None]
  - HYPOPHAGIA [None]
  - ENURESIS [None]
  - DIZZINESS [None]
  - MUSCULAR WEAKNESS [None]
  - DECREASED APPETITE [None]
  - IRRITABILITY [None]
  - EAR PAIN [None]
  - ABDOMINAL PAIN [None]
  - BACK PAIN [None]
  - ASTHENIA [None]
  - WEIGHT DECREASED [None]
  - ABNORMAL SENSATION IN EYE [None]
  - NAUSEA [None]
  - ALOPECIA [None]
  - HEADACHE [None]
  - DYSGEUSIA [None]
  - PAIN [None]
  - AGEUSIA [None]
  - PARAESTHESIA [None]
